FAERS Safety Report 25369916 (Version 1)
Quarter: 2025Q2

REPORT INFORMATION
  Report Type: Spontaneous
  Country: TW (occurrence: TW)
  Receive Date: 20250528
  Receipt Date: 20250528
  Transmission Date: 20250717
  Serious: Yes (Death, Life-Threatening, Hospitalization, Other)
  Sender: AMGEN
  Company Number: TW-AMGEN-TWNSP2025099874

PATIENT
  Sex: Male

DRUGS (1)
  1. FILGRASTIM [Suspect]
     Active Substance: FILGRASTIM
     Indication: Pancytopenia
     Route: 065

REACTIONS (6)
  - Death [Fatal]
  - Septic shock [Unknown]
  - Staphylococcal infection [Unknown]
  - Septic pulmonary embolism [Unknown]
  - Respiratory failure [Unknown]
  - Urinary tract infection [Unknown]
